FAERS Safety Report 8104401 (Version 4)
Quarter: 2014Q3

REPORT INFORMATION
  Report Type: Spontaneous
  Country: US (occurrence: US)
  Receive Date: 20110824
  Receipt Date: 20140716
  Transmission Date: 20150326
  Serious: Yes (Death, Hospitalization)
  Sender: FDA-Public Use
  Company Number: US-GLAXOSMITHKLINE-A0942017A

PATIENT
  Sex: Female
  Weight: 110.5 kg

DRUGS (11)
  1. LIPITOR [Concomitant]
     Active Substance: ATORVASTATIN CALCIUM
     Dates: end: 20100627
  2. TAMOXIFEN [Concomitant]
     Active Substance: TAMOXIFEN
     Dates: end: 20100627
  3. METOPROLOL [Concomitant]
     Active Substance: METOPROLOL
     Dates: end: 20100627
  4. SERTRALINE [Concomitant]
     Active Substance: SERTRALINE HYDROCHLORIDE
     Dates: end: 20100627
  5. TOPROL XL [Concomitant]
     Active Substance: METOPROLOL SUCCINATE
  6. HCTZ [Concomitant]
     Active Substance: HYDROCHLOROTHIAZIDE
     Dates: end: 20100627
  7. ALLOPURINOL. [Concomitant]
     Active Substance: ALLOPURINOL
     Dates: end: 20100627
  8. ATACAND [Concomitant]
     Active Substance: CANDESARTAN CILEXETIL
  9. GLIMEPIRIDE. [Concomitant]
     Active Substance: GLIMEPIRIDE
     Dates: end: 20100627
  10. AVANDAMET [Suspect]
     Active Substance: METFORMIN HYDROCHLORIDE\ROSIGLITAZONE MALEATE
     Indication: DIABETES MELLITUS
     Dosage: 1TAB PER DAY
     Route: 048
     Dates: start: 200908, end: 20100627
  11. ZOCOR [Concomitant]
     Active Substance: SIMVASTATIN

REACTIONS (2)
  - Coronary artery disease [Unknown]
  - Cardio-respiratory arrest [Fatal]
